FAERS Safety Report 15088192 (Version 1)
Quarter: 2018Q2

REPORT INFORMATION
  Report Type: Spontaneous
  Country: SK (occurrence: SK)
  Receive Date: 20180629
  Receipt Date: 20180629
  Transmission Date: 20180711
  Serious: Yes (Other)
  Sender: FDA-Public Use
  Company Number: SK-TEVA-2018-SK-912887

PATIENT
  Age: 58 Year
  Sex: Female

DRUGS (5)
  1. ASCORUTIN [Concomitant]
     Active Substance: ASCORBIC ACID\RUTIN
     Indication: CONTUSION
  2. ZODAC [Concomitant]
     Active Substance: CETIRIZINE HYDROCHLORIDE
  3. ATORVASTATIN 10 MG [Suspect]
     Active Substance: ATORVASTATIN
     Indication: BLOOD CHOLESTEROL INCREASED
     Route: 065
  4. FLAVOBION [Concomitant]
     Indication: LIVER FUNCTION TEST ABNORMAL
  5. NEUROL [Concomitant]
     Dosage: TWICE A DAY

REACTIONS (6)
  - Mood altered [Unknown]
  - Asthma [Unknown]
  - Restlessness [Unknown]
  - Dyspnoea [Unknown]
  - Vertigo [Unknown]
  - Depressed mood [Unknown]
